FAERS Safety Report 13289509 (Version 1)
Quarter: 2017Q1

REPORT INFORMATION
  Report Type: Spontaneous
  Country: DE (occurrence: DE)
  Receive Date: 20170303
  Receipt Date: 20170303
  Transmission Date: 20170428
  Serious: Yes (Other)
  Sender: FDA-Public Use
  Company Number: DE-SUN PHARMACEUTICAL INDUSTRIES LTD-2017RR-134641

PATIENT
  Age: 29 Year
  Sex: Female
  Weight: 53 kg

DRUGS (1)
  1. CIPROFLOXACIN. [Suspect]
     Active Substance: CIPROFLOXACIN
     Indication: PRODUCT USED FOR UNKNOWN INDICATION
     Dosage: 100 MG
     Route: 065
     Dates: start: 20150330, end: 20150402

REACTIONS (11)
  - Insomnia [Unknown]
  - Myositis [Unknown]
  - Tremor [Unknown]
  - Depression [Unknown]
  - Angina pectoris [Unknown]
  - Anxiety [Unknown]
  - Asthenia [Unknown]
  - Dyspnoea [Unknown]
  - Suicidal ideation [Unknown]
  - Restlessness [Unknown]
  - Tendonitis [Unknown]

NARRATIVE: CASE EVENT DATE: 20150330
